FAERS Safety Report 6701021-6 (Version None)
Quarter: 2010Q2

REPORT INFORMATION
  Report Type: 
  Country: None (occurrence: None)
  Receive Date: 20100428
  Receipt Date: 20100422
  Transmission Date: 20101027
  Serious: Yes (Other)
  Sender: FDA-Public Use
  Company Number: BR-ABBOTT-10P-020-0640244-00

PATIENT
  Sex: Male
  Weight: 71 kg

DRUGS (4)
  1. DEPAKENE [Suspect]
     Indication: EPILEPSY
     Route: 048
     Dates: start: 20100201
  2. DEPAKENE [Suspect]
     Route: 048
  3. PAROXETINE HCL [Concomitant]
     Indication: DEPRESSION
     Route: 048
     Dates: start: 20010101
  4. CLOPAN [Concomitant]
     Indication: SEDATIVE THERAPY
     Route: 048
     Dates: start: 20010101

REACTIONS (5)
  - DIZZINESS [None]
  - EPILEPSY [None]
  - LISTLESS [None]
  - SOMNOLENCE [None]
  - SPEECH DISORDER [None]
